FAERS Safety Report 24731661 (Version 1)
Quarter: 2024Q4

REPORT INFORMATION
  Report Type: Spontaneous
  Country: US (occurrence: US)
  Receive Date: 20241213
  Receipt Date: 20241213
  Transmission Date: 20250114
  Serious: No
  Sender: RECKITT BENCKISER
  Company Number: US-PROD-AS2-212756134-20-24-USA-RB-0008579

PATIENT
  Age: 2 Year
  Sex: Male
  Weight: 13.608 kg

DRUGS (1)
  1. DELSYM [Suspect]
     Active Substance: DEXTROMETHORPHAN
     Indication: Product used for unknown indication
     Dosage: UNK
     Route: 048
     Dates: start: 20240702, end: 20240702

REACTIONS (2)
  - Accidental exposure to product [Unknown]
  - Product closure issue [Unknown]

NARRATIVE: CASE EVENT DATE: 20240702
